FAERS Safety Report 10447650 (Version 1)
Quarter: 2014Q3

REPORT INFORMATION
  Report Type: Spontaneous
  Country: DK (occurrence: AU)
  Receive Date: 20140911
  Receipt Date: 20140911
  Transmission Date: 20150326
  Serious: Yes (Other)
  Sender: FDA-Public Use
  Company Number: AU-FRI-1000070557

PATIENT
  Age: 37 Year
  Sex: Female

DRUGS (3)
  1. ESCITALOPRAM [Suspect]
     Active Substance: ESCITALOPRAM OXALATE
     Indication: BIPOLAR DISORDER
     Dates: start: 20111024, end: 201111
  2. OLANZAPINE. [Concomitant]
     Active Substance: OLANZAPINE
     Dosage: 2.5 MG
     Dates: start: 20110915
  3. OLANZAPINE. [Concomitant]
     Active Substance: OLANZAPINE
     Dosage: 1250 MCG
     Dates: start: 20110930

REACTIONS (3)
  - Suicidal behaviour [Recovered/Resolved]
  - Off label use [Recovered/Resolved]
  - Anhedonia [Recovered/Resolved]

NARRATIVE: CASE EVENT DATE: 20111024
